FAERS Safety Report 16961242 (Version 1)
Quarter: 2019Q4

REPORT INFORMATION
  Report Type: Spontaneous
  Country: IT (occurrence: IT)
  Receive Date: 20191025
  Receipt Date: 20191025
  Transmission Date: 20200122
  Serious: Yes (Hospitalization, Other)
  Sender: FDA-Public Use
  Company Number: IT-HIKMA PHARMACEUTICALS USA INC.-IT-H14001-19-49529

PATIENT
  Age: 60 Year
  Sex: Male

DRUGS (4)
  1. FLUOROURACIL. [Suspect]
     Active Substance: FLUOROURACIL
     Indication: NON-HODGKIN^S LYMPHOMA
     Dosage: ()CYCLICAL
     Route: 065
  2. FOLINIC ACID [Suspect]
     Active Substance: LEUCOVORIN
     Indication: NON-HODGKIN^S LYMPHOMA
     Dosage: ()CYCLICAL
     Route: 065
  3. OXALIPLATIN. [Suspect]
     Active Substance: OXALIPLATIN
     Indication: NON-HODGKIN^S LYMPHOMA
     Dosage: ()CYCLICAL
     Route: 065
  4. IRINOTECAN [Suspect]
     Active Substance: IRINOTECAN
     Indication: NON-HODGKIN^S LYMPHOMA
     Dosage: ()CYCLICAL
     Route: 065

REACTIONS (4)
  - Streptococcal bacteraemia [Recovering/Resolving]
  - Mucosal inflammation [Unknown]
  - Pancytopenia [Unknown]
  - Toxicity to various agents [Unknown]
